FAERS Safety Report 22328239 (Version 1)
Quarter: 2023Q2

REPORT INFORMATION
  Report Type: Spontaneous
  Country: US (occurrence: None)
  Receive Date: 20230517
  Receipt Date: 20230517
  Transmission Date: 20230721
  Serious: No
  Sender: FDA-Public Use
  Company Number: 2023A105340

PATIENT

DRUGS (1)
  1. CRESTOR [Suspect]
     Active Substance: ROSUVASTATIN CALCIUM
     Route: 048

REACTIONS (5)
  - Neuropathy peripheral [Unknown]
  - Back pain [Unknown]
  - Cognitive disorder [Unknown]
  - Blood cholesterol decreased [Unknown]
  - Confusional state [Unknown]
